FAERS Safety Report 8837419 (Version 1)
Quarter: 2012Q4

REPORT INFORMATION
  Report Type: 
  Country: US (occurrence: US)
  Receive Date: 20121012
  Receipt Date: 20121012
  Transmission Date: 20130627
  Serious: No
  Sender: FDA-Public Use
  Company Number: US-JNJFOC-20121000735

PATIENT
  Age: 45 None
  Sex: Female

DRUGS (2)
  1. DURAGESIC [Suspect]
     Indication: BACK PAIN
     Route: 062
     Dates: start: 2011
  2. SARAPIN [Suspect]
     Indication: BACK DISORDER
     Route: 065
     Dates: start: 20120928

REACTIONS (5)
  - Gait disturbance [Not Recovered/Not Resolved]
  - Hyperhidrosis [Unknown]
  - Application site rash [Not Recovered/Not Resolved]
  - Drug administered at inappropriate site [Not Recovered/Not Resolved]
  - Product quality issue [Unknown]
